FAERS Safety Report 7830018-8 (Version None)
Quarter: 2011Q4

REPORT INFORMATION
  Report Type: 
  Country: None (occurrence: None)
  Receive Date: 20111018
  Receipt Date: 20111003
  Transmission Date: 20120403
  Serious: Yes (Hospitalization, Other)
  Sender: FDA-Public Use
  Company Number: 2010MA002411

PATIENT
  Sex: Female
  Weight: 104.3273 kg

DRUGS (42)
  1. DIOVAN [Concomitant]
  2. KLONOPIN [Concomitant]
  3. LORAZEPAM [Concomitant]
  4. OXYCODONE HCL AND ACETAMINOPHEN [Concomitant]
  5. PROPOXYPHENE NAPSYLATE [Concomitant]
  6. METOCLOPRAMIDE [Suspect]
     Indication: NAUSEA
     Dosage: 10 MG, PO
     Route: 048
     Dates: start: 20060601, end: 20080901
  7. CHLOTRIMAZOLE [Concomitant]
  8. FLOVENT [Concomitant]
  9. WELLBUTRIN [Concomitant]
  10. COREG [Concomitant]
  11. DIGOXIN [Concomitant]
  12. FERROUS SULFATE TAB [Concomitant]
  13. FLUCONAZOLE [Concomitant]
  14. PHOSLO [Concomitant]
  15. POTASSIUM [Concomitant]
  16. WARFARIN SODIUM [Concomitant]
  17. CEPHALEXIN [Concomitant]
  18. LIPITOR [Concomitant]
  19. MEGESTROL ACETATE [Concomitant]
  20. MEPRON [Concomitant]
  21. METOPROLOL TARTRATE [Concomitant]
  22. MIDODRINE HYDROCHLORIDE [Concomitant]
  23. ADVAIR DISKUS 100/50 [Concomitant]
  24. AMBIEN [Concomitant]
  25. AMLODIPINE [Concomitant]
  26. AMOXICILLIN [Concomitant]
  27. CLINDAMYCIN [Concomitant]
  28. FAMOTIDINE [Concomitant]
  29. FOLIC ACID [Concomitant]
  30. FUROSEMIDE [Concomitant]
  31. LISINOPRIL [Concomitant]
  32. BUPROPION HYDROCHLORIDE [Concomitant]
  33. CHLORHEXIDINE RINSE [Concomitant]
  34. LANTUS [Concomitant]
  35. LEXAPRO [Concomitant]
  36. PREDNISONE [Concomitant]
  37. PROCRIT [Concomitant]
  38. ALBUTEROL [Concomitant]
  39. ABILIFY [Concomitant]
  40. MYCOPHENOLATE MOFETIL (CELLCEPT) [Concomitant]
  41. CHROMAGEN [Concomitant]
  42. SPIRONOLACTONE [Concomitant]

REACTIONS (12)
  - ECONOMIC PROBLEM [None]
  - TARDIVE DYSKINESIA [None]
  - EMOTIONAL DISTRESS [None]
  - PARKINSON'S DISEASE [None]
  - DYSTONIA [None]
  - CHOREA [None]
  - TREMOR [None]
  - DYSKINESIA [None]
  - ANXIETY [None]
  - BRUXISM [None]
  - EXTRAPYRAMIDAL DISORDER [None]
  - MOVEMENT DISORDER [None]
